FAERS Safety Report 4863582-1 (Version None)
Quarter: 2005Q4

REPORT INFORMATION
  Report Type: 
  Country: None (occurrence: None)
  Receive Date: 20051222
  Receipt Date: 20050510
  Transmission Date: 20060501
  Serious: No
  Sender: FDA-Public Use
  Company Number: US-GLAXOSMITHKLINE-A0557977A

PATIENT
  Age: 33 Year
  Sex: Male

DRUGS (4)
  1. FLONASE [Suspect]
     Dosage: 1SPR TWICE PER DAY
     Route: 045
     Dates: start: 20030101
  2. ADVAIR DISKUS 250/50 [Concomitant]
  3. ZYRTEC-D 12 HOUR [Concomitant]
  4. LORATADINE [Concomitant]

REACTIONS (2)
  - NASAL CONGESTION [None]
  - PHARMACEUTICAL PRODUCT COMPLAINT [None]
